FAERS Safety Report 6133873-5 (Version None)
Quarter: 2009Q1

REPORT INFORMATION
  Report Type: 
  Country: None (occurrence: None)
  Receive Date: 20090326
  Receipt Date: 20090323
  Transmission Date: 20090719
  Serious: Yes (Hospitalization, Other)
  Sender: FDA-Public Use
  Company Number: PHHY2009NL10926

PATIENT
  Sex: Female

DRUGS (11)
  1. CYCLOSPORINE [Suspect]
     Indication: RENAL TRANSPLANT
     Dosage: 50 MG, BID
  2. RITONAVIR [Interacting]
     Indication: HIV INFECTION
  3. SAQUINAVIR [Interacting]
  4. ZIDOVUDINE [Interacting]
     Dosage: 300 MG, BID
  5. PREDNISONE [Concomitant]
     Dosage: 10 MG, QD
  6. INSULIN [Concomitant]
     Dosage: 4 TIMES DAILY
  7. PRAVASTATIN [Concomitant]
     Dosage: 10 MG, QD
  8. ENALAPRIL [Concomitant]
     Dosage: 10 MG, QD
  9. OMEPRAZOLE [Concomitant]
     Dosage: 20 MG, QD
  10. LAMIVUDINE [Concomitant]
     Dosage: 150 MG, BID
  11. NEVIRAPINE [Concomitant]
     Dosage: 200 MG, QD

REACTIONS (18)
  - BLOOD CREATININE INCREASED [None]
  - BLOOD HIV RNA INCREASED [None]
  - CD4 LYMPHOCYTES DECREASED [None]
  - CHOLELITHIASIS [None]
  - DRUG INTERACTION [None]
  - EPSTEIN-BARR VIRUS INFECTION [None]
  - HEPATIC CIRRHOSIS [None]
  - HERPES ZOSTER [None]
  - HYPERGLYCAEMIA [None]
  - HYPERPARATHYROIDISM [None]
  - IMMUNE RECONSTITUTION SYNDROME [None]
  - IMMUNOSUPPRESSANT DRUG LEVEL INCREASED [None]
  - KIDNEY TRANSPLANT REJECTION [None]
  - OESOPHAGEAL CANDIDIASIS [None]
  - PROTEINURIA [None]
  - STREPTOCOCCAL INFECTION [None]
  - STREPTOCOCCAL SEPSIS [None]
  - THROMBOCYTOPENIA [None]
